FAERS Safety Report 4959249-1 (Version None)
Quarter: 2006Q1

REPORT INFORMATION
  Report Type: 
  Country: None (occurrence: None)
  Receive Date: 20060130
  Receipt Date: 20050801
  Transmission Date: 20060701
  Serious: Yes (Hospitalization)
  Sender: FDA-Public Use
  Company Number: 142762USA

PATIENT
  Age: 28 Year
  Sex: Female

DRUGS (11)
  1. COPAXONE [Suspect]
     Indication: MULTIPLE SCLEROSIS
     Dates: start: 20000211, end: 20040101
  2. COPAXONE [Suspect]
     Indication: MULTIPLE SCLEROSIS
     Dates: start: 20050301
  3. STEROIDS [Concomitant]
  4. NEURONTIN [Concomitant]
  5. PROZAC [Concomitant]
  6. PROVIGIL [Concomitant]
  7. KLONOPIN [Concomitant]
  8. AMITRIPTYLINE HCL [Concomitant]
  9. DOXYCYCLINE [Concomitant]
  10. MULTIVITAMIN [Concomitant]
  11. OSCAL [Concomitant]

REACTIONS (5)
  - BLOOD POTASSIUM DECREASED [None]
  - BLOOD PRESSURE DECREASED [None]
  - DEHYDRATION [None]
  - GASTROENTERITIS VIRAL [None]
  - WEIGHT DECREASED [None]
